FAERS Safety Report 8243345-X (Version None)
Quarter: 2012Q1

REPORT INFORMATION
  Report Type: 
  Country: None (occurrence: None)
  Receive Date: 20120329
  Receipt Date: 20120322
  Transmission Date: 20120608
  Serious: Yes (Other)
  Sender: FDA-Public Use
  Company Number: BR-B.I. PHARMACEUTICALS,INC./RIDGEFIELD-2012-BR-00264BR

PATIENT
  Sex: Female

DRUGS (3)
  1. HYDROCHLOROTHIAZIDE [Concomitant]
     Indication: DIURETIC THERAPY
  2. TRAYENTA [Suspect]
     Indication: DIABETES MELLITUS
     Dosage: 5 MG
     Route: 048
     Dates: start: 20111201, end: 20120320
  3. MICARDIS [Suspect]
     Indication: BLOOD PRESSURE INCREASED
     Dosage: 40 MG
     Route: 048

REACTIONS (7)
  - DIZZINESS [None]
  - ATROPHY [None]
  - INSOMNIA [None]
  - WEIGHT INCREASED [None]
  - RHINORRHOEA [None]
  - BLOOD PRESSURE INCREASED [None]
  - MUSCLE SPASMS [None]
